FAERS Safety Report 5920993-0 (Version None)
Quarter: 2008Q4

REPORT INFORMATION
  Report Type: 
  Country: None (occurrence: None)
  Receive Date: 20081016
  Receipt Date: 20081007
  Transmission Date: 20090506
  Serious: Yes (Hospitalization, Other)
  Sender: FDA-Public Use
  Company Number: US-AVENTIS-200814144US

PATIENT
  Sex: Male

DRUGS (10)
  1. KETEK [Suspect]
     Dosage: DOSE: UNK
     Dates: start: 20050328, end: 20050407
  2. KETEK [Suspect]
     Indication: PNEUMONIA
     Dosage: DOSE: UNK
     Dates: start: 20050328, end: 20050407
  3. ANTIHYPERTENSIVES [Suspect]
     Dosage: DOSE: UNK
     Dates: start: 20050101
  4. TOPROL-XL [Concomitant]
     Dosage: DOSE: UNK
     Dates: start: 20050310, end: 20050323
  5. TOPROL-XL [Concomitant]
     Dosage: DOSE: UNK
     Dates: start: 20050101, end: 20050413
  6. TOPROL-XL [Concomitant]
     Dosage: DOSE: UNK
     Dates: start: 20080401
  7. TARKA [Concomitant]
     Dosage: DOSE: 4/240
     Dates: start: 20080323, end: 20080101
  8. PROTONIX [Concomitant]
  9. XANAX [Concomitant]
     Indication: ANXIETY
     Dosage: DOSE: 0.5 MG PRN
     Dates: start: 20050324
  10. VALIUM [Concomitant]
     Dates: start: 20050309

REACTIONS (11)
  - ABDOMINAL PAIN UPPER [None]
  - BLOOD BILIRUBIN INCREASED [None]
  - CHOLANGITIS [None]
  - CHOLECYSTITIS CHRONIC [None]
  - ESCHERICHIA SEPSIS [None]
  - HEPATOBILIARY SCAN ABNORMAL [None]
  - NAUSEA [None]
  - PANCREATIC ENZYMES INCREASED [None]
  - PANCREATITIS [None]
  - PYREXIA [None]
  - VOMITING [None]
